FAERS Safety Report 9817930 (Version 1)
Quarter: 2013Q4

REPORT INFORMATION
  Report Type: Spontaneous
  Country: US (occurrence: None)
  Receive Date: 20131223
  Receipt Date: 20131223
  Transmission Date: 20140711
  Serious: No
  Sender: FDA-Public Use
  Company Number: 218550

PATIENT
  Sex: Male

DRUGS (5)
  1. PICATO [Suspect]
     Indication: ACTINIC KERATOSIS
     Dosage: 1 IN 1 D TOPICAL
     Dates: start: 20120802, end: 20120803
  2. LISINOPRIL (LISINOPRIL) [Concomitant]
  3. OMEPRAZOLE (OMEPRAZOLE) [Concomitant]
  4. ZIAC (BISELECT) [Concomitant]
  5. TRICOR (FENOFIBRATE) [Concomitant]

REACTIONS (1)
  - Eye swelling [None]
